FAERS Safety Report 4687645-9 (Version None)
Quarter: 2005Q2

REPORT INFORMATION
  Report Type: 
  Country: None (occurrence: None)
  Receive Date: 20050608
  Receipt Date: 20050608
  Transmission Date: 20051028
  Serious: Yes (Hospitalization)
  Sender: FDA-Public Use
  Company Number: None

PATIENT
  Age: 57 Year
  Sex: Male
  Weight: 114.76 kg

DRUGS (6)
  1. LISINOPRIL [Suspect]
     Indication: HYPERTENSION
     Dosage: 20MG   Q DAY   ORAL
     Route: 048
  2. ASPIRIN [Concomitant]
  3. LOVASTATIN [Concomitant]
  4. METOPROLOL TARTRATE [Concomitant]
  5. NITROGLYCERIN [Concomitant]
  6. TRIAMCINOLONE ACETONIDE [Concomitant]

REACTIONS (2)
  - ERYTHEMA [None]
  - OEDEMA PERIPHERAL [None]
